FAERS Safety Report 10188549 (Version 1)
Quarter: 2014Q2

REPORT INFORMATION
  Report Type: Spontaneous
  Country: US (occurrence: US)
  Receive Date: 20140522
  Receipt Date: 20140522
  Transmission Date: 20141212
  Serious: No
  Sender: FDA-Public Use
  Company Number: US-SA-2014SA052317

PATIENT
  Sex: Female

DRUGS (3)
  1. LANTUS [Suspect]
     Indication: PRODUCT USED FOR UNKNOWN INDICATION
     Route: 065
     Dates: start: 2010
  2. NOVOLOG [Concomitant]
     Dates: start: 2010
  3. LEVEMIR [Concomitant]
     Dosage: STARTED ABOUT A MONTH AGO
     Dates: start: 2014

REACTIONS (1)
  - Weight increased [Unknown]
